FAERS Safety Report 25491166 (Version 1)
Quarter: 2025Q2

REPORT INFORMATION
  Report Type: Spontaneous
  Country: JP (occurrence: JP)
  Receive Date: 20250629
  Receipt Date: 20250629
  Transmission Date: 20250716
  Serious: Yes (Hospitalization, Other)
  Sender: NEXUS PHARMACEUTICALS
  Company Number: JP-Nexus Pharma-000421

PATIENT
  Age: 15 Year
  Sex: Male

DRUGS (1)
  1. LEVETIRACETAM [Suspect]
     Active Substance: LEVETIRACETAM
     Indication: Seizure

REACTIONS (5)
  - Aggression [Unknown]
  - Psychiatric symptom [Unknown]
  - Verbal abuse [Unknown]
  - Self-destructive behaviour [Unknown]
  - Unresponsive to stimuli [Unknown]
